FAERS Safety Report 20549563 (Version 7)
Quarter: 2023Q1

REPORT INFORMATION
  Report Type: Spontaneous
  Country: GB (occurrence: GB)
  Receive Date: 20220303
  Receipt Date: 20230211
  Transmission Date: 20230417
  Serious: Yes (Disabling, Other)
  Sender: FDA-Public Use
  Company Number: GB-AMGEN-GBRSP2022034435

PATIENT
  Age: 64 Year
  Sex: Female

DRUGS (53)
  1. TRASTUZUMAB [Suspect]
     Active Substance: TRASTUZUMAB
     Indication: Breast cancer metastatic
     Dosage: 483 MILLIGRAM, Q3WK, (DOSE MODIFIED (MODIFIED DUE TO WEIGHT)
     Route: 041
     Dates: start: 20170508, end: 20170508
  2. TRASTUZUMAB [Suspect]
     Active Substance: TRASTUZUMAB
     Dosage: 375 MILLIGRAM, Q3WK
     Route: 042
     Dates: start: 20170529, end: 20170829
  3. TRASTUZUMAB [Suspect]
     Active Substance: TRASTUZUMAB
     Dosage: 336 MILLIGRAM, Q3WK (6 CYCLES, DOSE MODIFIED )
     Route: 041
     Dates: start: 20170920, end: 20180103
  4. TRASTUZUMAB [Suspect]
     Active Substance: TRASTUZUMAB
     Dosage: 220 MILLIGRAM, Q3WK (TIW)
     Route: 042
     Dates: start: 20180420, end: 20180622
  5. CAPECITABINE [Suspect]
     Active Substance: CAPECITABINE
     Indication: Breast cancer metastatic
     Dosage: 1500 MILLIGRAM, BID
     Route: 040
     Dates: start: 20180809, end: 202009
  6. CAPECITABINE [Suspect]
     Active Substance: CAPECITABINE
     Dosage: 3000 MILLIGRAM, QD
     Route: 048
     Dates: start: 20180809, end: 202009
  7. CYCLOPHOSPHAMIDE [Suspect]
     Active Substance: CYCLOPHOSPHAMIDE
     Indication: Breast cancer metastatic
     Dosage: 900 MILLIGRAM, Q3WK
     Route: 042
     Dates: start: 20201130, end: 20210201
  8. CYCLOPHOSPHAMIDE [Suspect]
     Active Substance: CYCLOPHOSPHAMIDE
     Dosage: 1000 MILLIGRAM, Q3WK
     Route: 040
     Dates: start: 20201019, end: 20201109
  9. ADO-TRASTUZUMAB EMTANSINE [Suspect]
     Active Substance: ADO-TRASTUZUMAB EMTANSINE
     Indication: Breast cancer metastatic
     Dosage: 220 MILLIGRAM, Q3WK
     Route: 042
     Dates: start: 20180420, end: 20180622
  10. DOCETAXEL [Suspect]
     Active Substance: DOCETAXEL
     Indication: Breast cancer metastatic
     Dosage: 100 MILLIGRAM, Q3WK 6 CYCLES (PLANNED NUMBER OF CYCLES COMPLETED)
     Route: 042
     Dates: start: 20170508, end: 20170829
  11. PERTUZUMAB [Suspect]
     Active Substance: PERTUZUMAB
     Indication: Breast cancer metastatic
     Dosage: 840 MILLIGRAM, Q3WK, DOSE MODIFIED
     Route: 042
     Dates: start: 20170508, end: 20170508
  12. PERTUZUMAB [Suspect]
     Active Substance: PERTUZUMAB
     Dosage: 420 MILLIGRAM, Q3WK (PLANNED NUMBER OF CYCLES COMPLETED)
     Route: 040
     Dates: start: 20170520, end: 20180103
  13. EPIRUBICIN [Suspect]
     Active Substance: EPIRUBICIN
     Indication: Breast cancer metastatic
     Dosage: 120 MILLIGRAM, Q3WK PLANNED NUMBER OF CYCLES COMPLETED
     Route: 040
     Dates: start: 20201019, end: 20210201
  14. AMITRIPTYLINE [Concomitant]
     Active Substance: AMITRIPTYLINE
     Indication: Anxiety
     Dosage: 10 MILLIGRAM
     Route: 048
     Dates: start: 2017
  15. AMITRIPTYLINE [Concomitant]
     Active Substance: AMITRIPTYLINE
     Indication: Depression
  16. ATORVASTATIN [Concomitant]
     Active Substance: ATORVASTATIN
     Indication: Ejection fraction decreased
     Dosage: 40 MILLIGRAM, QD
     Route: 048
     Dates: start: 2017, end: 20210831
  17. BETAHISTINE [Concomitant]
     Active Substance: BETAHISTINE
     Indication: Adverse event
     Dosage: 16 MG, TID
     Route: 048
     Dates: start: 20200102, end: 202002
  18. CARVEDILOL [Concomitant]
     Active Substance: CARVEDILOL
     Indication: Ejection fraction decreased
     Dosage: 6.25 MILLIGRAM
     Route: 048
     Dates: start: 20180130, end: 20210831
  19. CARVEDILOL [Concomitant]
     Active Substance: CARVEDILOL
     Indication: Adverse event
     Dosage: 4187.5 MILLIGRAM
  20. CARVEDILOL [Concomitant]
     Active Substance: CARVEDILOL
     Dosage: 6.25 MILLIGRAM, BID
     Route: 048
     Dates: start: 20180130, end: 20210831
  21. CLARITHROMYCIN [Concomitant]
     Active Substance: CLARITHROMYCIN
     Indication: Adverse event
     Dosage: 500 MILLIGRAM, BID
     Route: 048
     Dates: start: 20210705, end: 20210711
  22. AMOXICILLIN\CLAVULANATE POTASSIUM [Concomitant]
     Active Substance: AMOXICILLIN\CLAVULANATE POTASSIUM
     Indication: Pyrexia
     Dosage: 625 MILLIGRAM, TID
     Route: 048
     Dates: start: 20210705, end: 20210711
  23. AMOXICILLIN\CLAVULANATE POTASSIUM [Concomitant]
     Active Substance: AMOXICILLIN\CLAVULANATE POTASSIUM
     Dosage: 625 MILLIGRAM, TID
     Route: 048
     Dates: start: 20190411, end: 20190417
  24. AMOXICILLIN\CLAVULANATE POTASSIUM [Concomitant]
     Active Substance: AMOXICILLIN\CLAVULANATE POTASSIUM
     Dosage: 1875 MILLIGRAM, QD
     Route: 048
     Dates: start: 20190411, end: 20190417
  25. CODEINE PHOSPHATE [Concomitant]
     Active Substance: CODEINE PHOSPHATE
     Indication: Pain
     Dosage: 30 MILLIGRAM, QID
     Route: 048
     Dates: start: 20200710, end: 20200812
  26. DALTEPARIN [Concomitant]
     Active Substance: DALTEPARIN
     Indication: Adverse event
     Dosage: 12500 U
     Route: 065
     Dates: start: 20200402, end: 20200402
  27. DEXAMETHASONE [Concomitant]
     Active Substance: DEXAMETHASONE
     Indication: Product used for unknown indication
     Dosage: 4 MILLIGRAM
     Route: 048
     Dates: start: 20201019, end: 20210201
  28. DEXAMETHASONE [Concomitant]
     Active Substance: DEXAMETHASONE
     Dosage: 16 MILLIGRAM
     Route: 048
     Dates: start: 20210729, end: 20210831
  29. DEXAMETHASONE SODIUM PHOSPHATE [Concomitant]
     Active Substance: DEXAMETHASONE SODIUM PHOSPHATE
     Indication: Product used for unknown indication
     Dosage: 8 MILLIGRAM
     Route: 042
     Dates: start: 20201019, end: 20210201
  30. DOCUSATE SODIUM [Concomitant]
     Active Substance: DOCUSATE SODIUM
     Indication: Product used for unknown indication
     Dosage: 200 MILLIGRAM
     Route: 048
     Dates: start: 20201019, end: 20210831
  31. DOMPERIDONE [Concomitant]
     Active Substance: DOMPERIDONE
     Indication: Product used for unknown indication
     Dosage: 10 MILLIGRAM
     Route: 048
     Dates: start: 20201019, end: 20201025
  32. FRUSEMIDE ALMUS [Concomitant]
     Indication: Ejection fraction decreased
     Dosage: 20 MILLIGRAM, QD
     Route: 048
     Dates: start: 20180406, end: 20190128
  33. LANSOPRAZOLE [Concomitant]
     Active Substance: LANSOPRAZOLE
     Indication: Gastrooesophageal reflux disease
     Dosage: 60 MILLIGRAM, QD
     Route: 048
     Dates: start: 20170905
  34. LANSOPRAZOLE [Concomitant]
     Active Substance: LANSOPRAZOLE
     Dosage: 30 MILLIGRAM,  (0.5 D)
     Route: 048
     Dates: start: 20170905, end: 20210831
  35. POLYETHYLENE GLYCOL 3350\POTASSIUM CHLORIDE\SODIUM BICARBONATE\SODIUM [Concomitant]
     Active Substance: POLYETHYLENE GLYCOL 3350\POTASSIUM CHLORIDE\SODIUM BICARBONATE\SODIUM CHLORIDE
     Indication: Adverse event
     Dosage: 2 DOSAGE FORM, BID
     Route: 048
     Dates: start: 20201014, end: 20210831
  36. LISINOPRIL [Concomitant]
     Active Substance: LISINOPRIL
     Indication: Ejection fraction decreased
     Dosage: 20 MILLIGRAM, QD
     Route: 048
     Dates: start: 20180130, end: 20210831
  37. MIRTAZAPINE [Concomitant]
     Active Substance: MIRTAZAPINE
     Indication: Insomnia
     Dosage: 15 MILLIGRAM
     Route: 048
     Dates: start: 20210608, end: 20210831
  38. MORPHINE SULFATE [Concomitant]
     Active Substance: MORPHINE SULFATE
     Indication: Pain
     Dosage: 30 MILLIGRAM
     Route: 048
     Dates: end: 20210615
  39. MORPHINE SULFATE [Concomitant]
     Active Substance: MORPHINE SULFATE
     Indication: Adverse event
     Dosage: UNK
     Route: 065
     Dates: start: 201912, end: 2020
  40. MORPHINE SULFATE [Concomitant]
     Active Substance: MORPHINE SULFATE
     Dosage: 10 MILLIGRAM
     Route: 048
     Dates: end: 20210831
  41. MORPHINE SULFATE [Concomitant]
     Active Substance: MORPHINE SULFATE
     Dosage: 40 MILLIGRAM, BID (0.5 DAY)
     Route: 048
     Dates: start: 20210616, end: 20210831
  42. OMEPRAZOLE [Concomitant]
     Active Substance: OMEPRAZOLE
     Indication: Dyspepsia
     Dosage: 20 MILLIGRAM, QD
     Route: 048
     Dates: end: 20210831
  43. ONDANSETRON [Concomitant]
     Active Substance: ONDANSETRON
     Indication: Product used for unknown indication
     Dosage: 8 MILLIGRAM
     Route: 048
     Dates: start: 20201019, end: 20210201
  44. ACETAMINOPHEN [Concomitant]
     Active Substance: ACETAMINOPHEN
     Indication: Product used for unknown indication
     Dosage: UNK
     Route: 048
     Dates: start: 201912, end: 2020
  45. ACETAMINOPHEN [Concomitant]
     Active Substance: ACETAMINOPHEN
     Indication: Adverse event
  46. SENNA [Concomitant]
     Active Substance: SENNA LEAF\SENNOSIDES\SENNOSIDES A AND B
     Indication: Adverse event
     Dosage: 15 MILLIGRAM, QD
     Route: 048
     Dates: start: 20201014, end: 20210831
  47. ZOLEDRONIC ACID [Concomitant]
     Active Substance: ZOLEDRONIC ACID
     Indication: Product used for unknown indication
     Dosage: 4 MILLIGRAM
     Route: 042
     Dates: start: 20201109, end: 20210705
  48. MORPHINE SULFATE [Concomitant]
     Active Substance: MORPHINE SULFATE
     Dosage: UNK
     Route: 065
  49. AMOXICILLIN\CLAVULANATE POTASSIUM [Concomitant]
     Active Substance: AMOXICILLIN\CLAVULANATE POTASSIUM
     Indication: Pyrexia
     Route: 048
     Dates: start: 20190411, end: 20190417
  50. AMOXICILLIN\CLAVULANATE POTASSIUM [Concomitant]
     Active Substance: AMOXICILLIN\CLAVULANATE POTASSIUM
     Dosage: 625 MILLIGRAM, TID
     Route: 048
     Dates: start: 20210705, end: 20210711
  51. LOPERAMIDE HYDROCHLORIDE [Concomitant]
     Active Substance: LOPERAMIDE HYDROCHLORIDE
     Indication: Product used for unknown indication
     Dosage: UNK
     Route: 065
  52. FUROSEMIDE [Concomitant]
     Active Substance: FUROSEMIDE
     Indication: Ejection fraction decreased
     Dosage: 20 MILLIGRAM, QD
     Route: 048
     Dates: start: 20180406, end: 20190128
  53. DIAH LIMIT [Concomitant]
     Dosage: UNK

REACTIONS (8)
  - Musculoskeletal chest pain [Unknown]
  - Headache [Not Recovered/Not Resolved]
  - Chest pain [Unknown]
  - Visual impairment [Unknown]
  - Pleuritic pain [Recovered/Resolved]
  - Abdominal distension [Recovered/Resolved with Sequelae]
  - Vertigo [Recovering/Resolving]
  - Off label use [Unknown]

NARRATIVE: CASE EVENT DATE: 20191201
